FAERS Safety Report 14698047 (Version 1)
Quarter: 2018Q1

REPORT INFORMATION
  Report Type: Report from Study
  Country: DE (occurrence: DE)
  Receive Date: 20180330
  Receipt Date: 20180330
  Transmission Date: 20180509
  Serious: Yes (Hospitalization, Other)
  Sender: FDA-Public Use
  Company Number: DE-BRISTOL-MYERS SQUIBB COMPANY-20705968

PATIENT
  Age: 59 Year
  Sex: Male

DRUGS (3)
  1. IPILIMUMAB [Suspect]
     Active Substance: IPILIMUMAB
     Indication: NON-SMALL CELL LUNG CANCER
     Dosage: 170ML  10 MG/KG  COURSE:2
     Route: 042
     Dates: start: 20140408
  2. PACLITAXEL. [Suspect]
     Active Substance: PACLITAXEL
     Indication: NON-SMALL CELL LUNG CANCER
     Dosage: 350 MG, UNK
     Route: 042
     Dates: start: 20140224
  3. CARBOPLATIN. [Suspect]
     Active Substance: CARBOPLATIN
     Indication: NON-SMALL CELL LUNG CANCER
     Dosage: 716 MG, QCYCLE
     Route: 042
     Dates: start: 20140224

REACTIONS (4)
  - Diarrhoea [Recovered/Resolved with Sequelae]
  - Syncope [Recovered/Resolved]
  - Febrile neutropenia [Recovered/Resolved]
  - Eczema [Recovered/Resolved with Sequelae]

NARRATIVE: CASE EVENT DATE: 20140504
